FAERS Safety Report 16288335 (Version 1)
Quarter: 2019Q2

REPORT INFORMATION
  Report Type: Spontaneous
  Country: US (occurrence: US)
  Receive Date: 20190508
  Receipt Date: 20190508
  Transmission Date: 20190711
  Serious: No
  Sender: FDA-Public Use
  Company Number: US-ASTRAZENECA-2019SE56374

PATIENT
  Sex: Female

DRUGS (1)
  1. FASENRA [Suspect]
     Active Substance: BENRALIZUMAB
     Indication: ASTHMA
     Dosage: EVERY 4 WEEKS FOR THE FIRST 3 DOSES AND THEN EVERY 8 WEEKS
     Route: 058
     Dates: start: 201812

REACTIONS (5)
  - Abdominal distension [Unknown]
  - Injection site pain [Unknown]
  - Product dose omission [Unknown]
  - Movement disorder [Unknown]
  - Abdominal pain [Unknown]

NARRATIVE: CASE EVENT DATE: 201801
